FAERS Safety Report 6937472-4 (Version None)
Quarter: 2010Q3

REPORT INFORMATION
  Report Type: 
  Country: None (occurrence: None)
  Receive Date: 20100823
  Receipt Date: 20100809
  Transmission Date: 20110219
  Serious: Yes (Death, Other)
  Sender: FDA-Public Use
  Company Number: US-ROCHE-722210

PATIENT
  Age: 67 Year
  Sex: Female

DRUGS (3)
  1. BEVACIZUMAB [Suspect]
     Indication: GLIOBLASTOMA
     Route: 065
     Dates: end: 20080301
  2. DEXAMETHASONE [Suspect]
     Indication: PRODUCT USED FOR UNKNOWN INDICATION
     Route: 065
     Dates: end: 20080301
  3. AFLIBERCEPT [Suspect]
     Indication: GLIOBLASTOMA
     Dosage: 8 CYCLES RECEIVED
     Route: 065
     Dates: end: 20070701

REACTIONS (3)
  - DEATH [None]
  - INTESTINAL PERFORATION [None]
  - OPTIC NEUROPATHY [None]
